FAERS Safety Report 19745503 (Version 2)
Quarter: 2021Q3

REPORT INFORMATION
  Report Type: Report from Study
  Country: CO (occurrence: CO)
  Receive Date: 20210825
  Receipt Date: 20210902
  Transmission Date: 20211014
  Serious: Yes (Hospitalization)
  Sender: FDA-Public Use
  Company Number: NVSC2021CO140963

PATIENT
  Sex: Female

DRUGS (3)
  1. AFINITOR [Suspect]
     Active Substance: EVEROLIMUS
     Indication: BREAST CANCER
     Dosage: UNK, Q12H
     Route: 048
  2. FEMARA [Suspect]
     Active Substance: LETROZOLE
     Indication: BREAST CANCER
     Dosage: UNK
     Route: 048
  3. CARVEDILOL. [Concomitant]
     Active Substance: CARVEDILOL
     Indication: CARDIAC FAILURE
     Dosage: UNK, QD
     Route: 048

REACTIONS (16)
  - Back pain [Unknown]
  - Vomiting [Unknown]
  - Oral mucosal exfoliation [Unknown]
  - Hypersensitivity [Unknown]
  - Dysstasia [Unknown]
  - Abdominal pain upper [Unknown]
  - Eating disorder [Unknown]
  - Weight decreased [Unknown]
  - Pain [Unknown]
  - Aphasia [Unknown]
  - Malaise [Unknown]
  - Pyrexia [Unknown]
  - Gastric infection [Unknown]
  - Illness [Unknown]
  - Decreased appetite [Unknown]
  - General physical health deterioration [Unknown]
